FAERS Safety Report 19934221 (Version 1)
Quarter: 2021Q4

REPORT INFORMATION
  Report Type: Spontaneous
  Country: US (occurrence: US)
  Receive Date: 20211008
  Receipt Date: 20211008
  Transmission Date: 20220303
  Serious: Yes (Death, Other)
  Sender: FDA-Public Use
  Company Number: US-SA-SAC20211007001195

PATIENT

DRUGS (1)
  1. ZANTAC [Suspect]
     Active Substance: RANITIDINE HYDROCHLORIDE
     Dates: start: 199301, end: 201712

REACTIONS (2)
  - Oesophageal carcinoma [Fatal]
  - Nasopharyngeal cancer [Fatal]

NARRATIVE: CASE EVENT DATE: 20190401
